FAERS Safety Report 6140177-3 (Version None)
Quarter: 2009Q1

REPORT INFORMATION
  Report Type: 
  Country: None (occurrence: None)
  Receive Date: 20090324
  Receipt Date: 20090313
  Transmission Date: 20090719
  Serious: Yes (Disabling, Other)
  Sender: FDA-Public Use
  Company Number: 2009000791

PATIENT
  Age: 82 Year
  Sex: Male

DRUGS (3)
  1. MACUGEN [Suspect]
     Indication: MACULAR DEGENERATION
     Dosage: (0.3 MG),INTRA-VITREAL
     Dates: start: 20090224
  2. POVIDONE IODINE [Concomitant]
  3. GATIFLOXACIN (GATICFLOXACIN) [Concomitant]

REACTIONS (1)
  - EYE INFECTION INTRAOCULAR [None]
